FAERS Safety Report 8896823 (Version 1)
Quarter: 2012Q4

REPORT INFORMATION
  Report Type: Report from Study
  Country: DE (occurrence: DE)
  Receive Date: 20121108
  Receipt Date: 20121108
  Transmission Date: 20130627
  Serious: Yes (Hospitalization)
  Sender: FDA-Public Use
  Company Number: DE-ABBOTT-12P-062-1002552-00

PATIENT
  Age: 25 Year
  Sex: Female
  Weight: 44 kg

DRUGS (6)
  1. HUMIRA [Suspect]
     Indication: CROHN^S DISEASE
     Route: 058
     Dates: start: 20111222
  2. SYSTEMIC STEROIDS (NON-ABBOTT) [Concomitant]
     Indication: PRODUCT USED FOR UNKNOWN INDICATION
  3. PAVERIWERN (NON-ABBOTT) [Concomitant]
     Indication: PRODUCT USED FOR UNKNOWN INDICATION
  4. METAMIZOLE (NON-ABBOTT) [Concomitant]
     Indication: PRODUCT USED FOR UNKNOWN INDICATION
  5. VITAMINE B12 (NON-ABBOTT) [Concomitant]
     Indication: PRODUCT USED FOR UNKNOWN INDICATION
  6. IRON (NON-ABBOTT) [Concomitant]
     Indication: PRODUCT USED FOR UNKNOWN INDICATION

REACTIONS (5)
  - Enterovesical fistula [Recovered/Resolved]
  - Abscess intestinal [Recovered/Resolved]
  - Lymphadenitis [Recovered/Resolved]
  - Haemorrhagic ovarian cyst [Recovered/Resolved]
  - Inflammation [Recovered/Resolved]
